FAERS Safety Report 15118544 (Version 2)
Quarter: 2018Q3

REPORT INFORMATION
  Report Type: Spontaneous
  Country: JP (occurrence: JP)
  Receive Date: 20180709
  Receipt Date: 20180725
  Transmission Date: 20181010
  Serious: Yes (Other)
  Sender: FDA-Public Use
  Company Number: JP-ACCORD-069202

PATIENT
  Age: 68 Year
  Sex: Male

DRUGS (4)
  1. FLUDARABINE [Suspect]
     Active Substance: FLUDARABINE PHOSPHATE
     Indication: PHILADELPHIA CHROMOSOME NEGATIVE
  2. METHOTREXATE. [Suspect]
     Active Substance: METHOTREXATE
     Indication: IMMUNOSUPPRESSION
     Dosage: DAYS 1 AND 3 POST?TRANSPLATATION
     Route: 042
  3. TACROLIMUS. [Concomitant]
     Active Substance: TACROLIMUS
     Indication: IMMUNOSUPPRESSION
     Dosage: CONTINUOUSLY INFUSED
     Route: 041
  4. MELPHALAN. [Suspect]
     Active Substance: MELPHALAN
     Indication: PHILADELPHIA CHROMOSOME NEGATIVE

REACTIONS (1)
  - Stomatitis [Unknown]
